FAERS Safety Report 6901559-2 (Version None)
Quarter: 2010Q3

REPORT INFORMATION
  Report Type: 
  Country: None (occurrence: None)
  Receive Date: 20100803
  Receipt Date: 20080221
  Transmission Date: 20110219
  Serious: No
  Sender: FDA-Public Use
  Company Number: US-PFIZER INC-2008017019

PATIENT
  Sex: Female
  Weight: 56.818 kg

DRUGS (2)
  1. LYRICA [Suspect]
     Indication: KNEE ARTHROPLASTY
     Route: 048
     Dates: start: 20080213, end: 20080216
  2. LYRICA [Suspect]
     Indication: ARTHRALGIA

REACTIONS (3)
  - BALANCE DISORDER [None]
  - LIP DISCOLOURATION [None]
  - SKIN DISCOLOURATION [None]
